FAERS Safety Report 12474362 (Version 1)
Quarter: 2016Q2

REPORT INFORMATION
  Report Type: Spontaneous
  Country: US (occurrence: None)
  Receive Date: 20160616
  Receipt Date: 20160616
  Transmission Date: 20160815
  Serious: No
  Sender: FDA-Public Use
  Company Number: None

PATIENT
  Age: 69 Year
  Sex: Female
  Weight: 79.38 kg

DRUGS (2)
  1. ACYCLOVIR. [Concomitant]
     Active Substance: ACYCLOVIR
  2. PREDNISONE. [Suspect]
     Active Substance: PREDNISONE
     Indication: PLEURAL EFFUSION
     Dosage: 1 TABLET(S) AT BEDTIME TAKEN BY MOUTH
     Route: 048
     Dates: start: 20141027

REACTIONS (3)
  - Weight increased [None]
  - Arthralgia [None]
  - Fat tissue increased [None]

NARRATIVE: CASE EVENT DATE: 20160401
